FAERS Safety Report 9416570 (Version 1)
Quarter: 2013Q3

REPORT INFORMATION
  Report Type: Spontaneous
  Country: US (occurrence: None)
  Receive Date: 20130719
  Receipt Date: 20130719
  Transmission Date: 20140515
  Serious: Yes (Hospitalization, Other)
  Sender: FDA-Public Use
  Company Number: 13-03275

PATIENT
  Age: 36 Year
  Sex: Male

DRUGS (1)
  1. ASTHMANEFRIN INHALATION SOLUTION, 2.25% [Suspect]
     Indication: ASTHMA
     Dosage: 1 VIAL
     Route: 048

REACTIONS (2)
  - Dyspnoea [None]
  - Anxiety [None]
